FAERS Safety Report 10274388 (Version 2)
Quarter: 2014Q3

REPORT INFORMATION
  Report Type: Report from Study
  Country: BR (occurrence: BR)
  Receive Date: 20140702
  Receipt Date: 20140702
  Transmission Date: 20150326
  Serious: Yes (Death, Other)
  Sender: FDA-Public Use
  Company Number: BR-ABBVIE-12P-020-1005623-00

PATIENT
  Age: 56 Year
  Sex: Female
  Weight: 60 kg

DRUGS (2)
  1. UNSPECIFIED MEDICATION [Concomitant]
     Active Substance: UNSPECIFIED INGREDIENT
     Indication: PRODUCT USED FOR UNKNOWN INDICATION
     Route: 048
  2. HUMIRA [Suspect]
     Active Substance: ADALIMUMAB
     Indication: RHEUMATOID ARTHRITIS
     Route: 058

REACTIONS (6)
  - Respiratory disorder [Fatal]
  - Vomiting [Not Recovered/Not Resolved]
  - Gastric ulcer [Fatal]
  - Gastric perforation [Not Recovered/Not Resolved]
  - Disease complication [Fatal]
  - Gastric disorder [Fatal]

NARRATIVE: CASE EVENT DATE: 201210
